FAERS Safety Report 5362570-9 (Version None)
Quarter: 2007Q2

REPORT INFORMATION
  Report Type: 
  Country: None (occurrence: None)
  Receive Date: 20070619
  Receipt Date: 20070614
  Transmission Date: 20071010
  Serious: Yes (Hospitalization)
  Sender: FDA-Public Use
  Company Number: DE-BOEHRINGER INGELHEIM PHARMACEUTICALS, INC.-2007-DE-03617DE

PATIENT

DRUGS (2)
  1. SPIRIVA [Suspect]
  2. VIANI FORTE [Concomitant]

REACTIONS (1)
  - ARTERIOSPASM CORONARY [None]
